FAERS Safety Report 9353780 (Version 1)
Quarter: 2013Q2

REPORT INFORMATION
  Report Type: Spontaneous
  Country: GB (occurrence: GB)
  Receive Date: 20130618
  Receipt Date: 20130618
  Transmission Date: 20140414
  Serious: Yes (Disabling, Other)
  Sender: FDA-Public Use
  Company Number: GB-PFIZER INC-2013178220

PATIENT
  Age: 40 Year
  Sex: Male

DRUGS (3)
  1. SUMATRIPTAN SUCCINATE [Suspect]
     Indication: MIGRAINE
     Dosage: UNK
  2. SUMATRIPTAN SUCCINATE [Suspect]
     Dosage: UNK
  3. PARACETAMOL [Suspect]
     Indication: MIGRAINE
     Dosage: UNK

REACTIONS (1)
  - Medication overuse headache [Recovering/Resolving]
